FAERS Safety Report 6903204-9 (Version None)
Quarter: 2010Q3

REPORT INFORMATION
  Report Type: 
  Country: None (occurrence: None)
  Receive Date: 20100803
  Receipt Date: 20080630
  Transmission Date: 20110219
  Serious: No
  Sender: FDA-Public Use
  Company Number: US-PFIZER INC-2008010430

PATIENT
  Sex: Female
  Weight: 66.68 kg

DRUGS (1)
  1. LYRICA [Suspect]
     Indication: ANALGESIC THERAPY
     Dates: start: 20070809

REACTIONS (3)
  - MENSTRUATION IRREGULAR [None]
  - METRORRHAGIA [None]
  - OVARIAN CYST [None]
